FAERS Safety Report 7420876-3 (Version None)
Quarter: 2011Q2

REPORT INFORMATION
  Report Type: 
  Country: None (occurrence: None)
  Receive Date: 20110418
  Receipt Date: 20110412
  Transmission Date: 20111010
  Serious: Yes (Hospitalization)
  Sender: FDA-Public Use
  Company Number: A0877042A

PATIENT
  Age: 69 Year
  Sex: Male
  Weight: 71.4 kg

DRUGS (1)
  1. AVANDIA [Suspect]
     Indication: DIABETES MELLITUS
     Route: 048
     Dates: start: 20001001, end: 20040901

REACTIONS (9)
  - CARDIAC ARREST [None]
  - HYPERTENSION [None]
  - CARDIAC FAILURE CONGESTIVE [None]
  - MYOCARDIAL INFARCTION [None]
  - HEART INJURY [None]
  - FLUID RETENTION [None]
  - VASCULAR GRAFT [None]
  - FLUID OVERLOAD [None]
  - CORONARY ARTERY DISEASE [None]
